FAERS Safety Report 10152817 (Version 1)
Quarter: 2014Q2

REPORT INFORMATION
  Report Type: Report from Study
  Country: TR (occurrence: TR)
  Receive Date: 20140505
  Receipt Date: 20140505
  Transmission Date: 20141212
  Serious: Yes (Other)
  Sender: FDA-Public Use
  Company Number: PHHY2014TR053773

PATIENT
  Sex: Male
  Weight: 44 kg

DRUGS (1)
  1. EXJADE [Suspect]
     Indication: THALASSAEMIA BETA
     Dosage: 1250 MG, DAILY
     Route: 048

REACTIONS (1)
  - Road traffic accident [Recovered/Resolved]
